FAERS Safety Report 4394780-1 (Version None)
Quarter: 2004Q3

REPORT INFORMATION
  Report Type: 
  Country: None (occurrence: None)
  Receive Date: 20040707
  Receipt Date: 20040621
  Transmission Date: 20050211
  Serious: No
  Sender: FDA-Public Use
  Company Number: 2004SE03497

PATIENT
  Age: 75 Year
  Sex: Female
  Weight: 85 kg

DRUGS (3)
  1. PARAPRES [Suspect]
     Indication: HYPERTENSION
     Dosage: 8 MG QD PO
     Route: 048
     Dates: start: 20040120, end: 20040217
  2. PARAPRES [Suspect]
     Indication: HYPERTENSION
     Dosage: 16 MG QD PO
     Route: 048
     Dates: start: 20040217, end: 20040224
  3. INSULATARD NPH NOVOLET [Concomitant]

REACTIONS (1)
  - BLOOD PRESSURE INCREASED [None]
